FAERS Safety Report 5909462-1 (Version None)
Quarter: 2008Q4

REPORT INFORMATION
  Report Type: 
  Country: None (occurrence: None)
  Receive Date: 20081006
  Receipt Date: 20080925
  Transmission Date: 20090506
  Serious: Yes (Other)
  Sender: FDA-Public Use
  Company Number: US-PFIZER INC-2008081994

PATIENT
  Sex: Female

DRUGS (1)
  1. CHANTIX [Suspect]
     Indication: SMOKING CESSATION THERAPY
     Dates: start: 20080919, end: 20080921

REACTIONS (6)
  - ASTHENOPIA [None]
  - EYE PAIN [None]
  - HEADACHE [None]
  - MYODESOPSIA [None]
  - STRESS [None]
  - VISION BLURRED [None]
